FAERS Safety Report 5393429-9 (Version None)
Quarter: 2007Q3

REPORT INFORMATION
  Report Type: 
  Country: None (occurrence: None)
  Receive Date: 20070719
  Receipt Date: 20070719
  Transmission Date: 20080115
  Serious: No
  Sender: FDA-Public Use
  Company Number: None

PATIENT

DRUGS (3)
  1. METFORMIN HCL [Suspect]
     Indication: DIABETES MELLITUS INADEQUATE CONTROL
     Dosage: 500 MG 2 BID
  2. GLIPIZIDE [Suspect]
     Indication: DIABETES MELLITUS INADEQUATE CONTROL
     Dosage: 2.5/500 MG BID
  3. METAGLIDE [Suspect]
     Indication: DIABETES MELLITUS INADEQUATE CONTROL
     Dosage: 2.5/500MG 2AM, 2PM

REACTIONS (3)
  - BLOOD GLUCOSE INCREASED [None]
  - GLYCOSYLATED HAEMOGLOBIN INCREASED [None]
  - THERAPEUTIC RESPONSE UNEXPECTED WITH DRUG SUBSTITUTION [None]
